FAERS Safety Report 18443791 (Version 4)
Quarter: 2021Q1

REPORT INFORMATION
  Report Type: Report from Study
  Country: US (occurrence: US)
  Receive Date: 20201029
  Receipt Date: 20210112
  Transmission Date: 20210419
  Serious: No
  Sender: FDA-Public Use
  Company Number: NVSC2020US286902

PATIENT
  Sex: Male

DRUGS (1)
  1. ENTRESTO [Suspect]
     Active Substance: SACUBITRIL\VALSARTAN
     Indication: PRODUCT USED FOR UNKNOWN INDICATION
     Dosage: 24.26 MG, BID
     Route: 048
     Dates: start: 202008

REACTIONS (7)
  - Dizziness [Recovered/Resolved]
  - Pain [Unknown]
  - Fluid retention [Recovering/Resolving]
  - Pain in extremity [Unknown]
  - Blood pressure decreased [Unknown]
  - Weight decreased [Recovering/Resolving]
  - Gout [Recovering/Resolving]
